FAERS Safety Report 9092489 (Version 1)
Quarter: 2013Q1

REPORT INFORMATION
  Report Type: Report from Study
  Country: US (occurrence: US)
  Receive Date: 20130201
  Receipt Date: 20130201
  Transmission Date: 20140127
  Serious: No
  Sender: FDA-Public Use
  Company Number: US-ABBOTT-12P-163-1027551-00

PATIENT
  Sex: Female
  Weight: 72.64 kg

DRUGS (3)
  1. HUMIRA [Suspect]
     Indication: PSORIASIS
     Dosage: LOADING DOSE
  2. HUMIRA [Suspect]
     Route: 058
     Dates: start: 201201, end: 201203
  3. PRE-NATAL VITAMINS [Concomitant]
     Indication: PREGNANCY
     Dates: start: 2012

REACTIONS (7)
  - Hypothyroidism [Unknown]
  - Syncope [Recovered/Resolved]
  - Complication of pregnancy [Recovered/Resolved]
  - Pregnancy [Not Recovered/Not Resolved]
  - Psoriasis [Not Recovered/Not Resolved]
  - Depression [Not Recovered/Not Resolved]
  - Therapeutic response unexpected [Unknown]
